FAERS Safety Report 8597323-1 (Version None)
Quarter: 2012Q3

REPORT INFORMATION
  Report Type: 
  Country: None (occurrence: None)
  Receive Date: 20120816
  Receipt Date: 20120813
  Transmission Date: 20120928
  Serious: No
  Sender: FDA-Public Use
  Company Number: US-PFIZER INC-2012198618

PATIENT
  Age: 68 Year
  Sex: Female
  Weight: 56.689 kg

DRUGS (4)
  1. GABAPENTIN [Suspect]
     Indication: NECK PAIN
  2. GABAPENTIN [Suspect]
     Indication: SCIATICA
  3. GABAPENTIN [Suspect]
     Indication: BACK PAIN
  4. GABAPENTIN [Suspect]
     Indication: MIGRAINE
     Dosage: 300 MG, 2X/DAY
     Dates: start: 20120705, end: 20120708

REACTIONS (2)
  - DRUG INEFFECTIVE [None]
  - HEADACHE [None]
